FAERS Safety Report 13405942 (Version 1)
Quarter: 2017Q2

REPORT INFORMATION
  Report Type: Spontaneous
  Country: US (occurrence: US)
  Receive Date: 20170405
  Receipt Date: 20170405
  Transmission Date: 20170830
  Serious: No
  Sender: FDA-Public Use
  Company Number: US-PFIZER INC-2017147024

PATIENT
  Age: 54 Year
  Sex: Male

DRUGS (1)
  1. LYRICA [Suspect]
     Active Substance: PREGABALIN
     Dosage: ONE ONCE AT NIGHT
     Dates: start: 20170330

REACTIONS (3)
  - Chills [Unknown]
  - Tremor [Unknown]
  - Dyspnoea [Unknown]
